FAERS Safety Report 5448681-8 (Version None)
Quarter: 2007Q3

REPORT INFORMATION
  Report Type: 
  Country: None (occurrence: None)
  Receive Date: 20070911
  Receipt Date: 20070904
  Transmission Date: 20080115
  Serious: Yes (Hospitalization)
  Sender: FDA-Public Use
  Company Number: A0652899A

PATIENT
  Age: 88 Year
  Sex: Female
  Weight: 48.2 kg

DRUGS (7)
  1. AVANDIA [Suspect]
     Indication: TYPE 2 DIABETES MELLITUS
     Dosage: 8MG PER DAY
     Route: 048
     Dates: end: 20070501
  2. DIOVAN [Concomitant]
     Route: 048
  3. POTASSIUM CHLORIDE [Concomitant]
  4. LASIX [Concomitant]
  5. SIMVASTATIN [Concomitant]
  6. PREMARIN [Concomitant]
  7. PROCRIT [Concomitant]

REACTIONS (11)
  - BLOOD GLUCOSE INCREASED [None]
  - CARDIAC FAILURE [None]
  - CARDIAC FAILURE CONGESTIVE [None]
  - CHEST DISCOMFORT [None]
  - DIABETES MELLITUS INADEQUATE CONTROL [None]
  - DYSPNOEA [None]
  - DYSPNOEA EXERTIONAL [None]
  - GALLOP RHYTHM PRESENT [None]
  - JUGULAR VEIN DISTENSION [None]
  - OEDEMA PERIPHERAL [None]
  - ORTHOPNOEA [None]
